FAERS Safety Report 6575799-9 (Version None)
Quarter: 2010Q1

REPORT INFORMATION
  Report Type: 
  Country: None (occurrence: None)
  Receive Date: 20100208
  Receipt Date: 20100208
  Transmission Date: 20100710
  Serious: Yes (Hospitalization)
  Sender: FDA-Public Use
  Company Number: None

PATIENT
  Age: 23 Year
  Sex: Female
  Weight: 54.4316 kg

DRUGS (1)
  1. BUPROPION HCL [Suspect]
     Indication: BIPOLAR DISORDER
     Dosage: 300MG ONCE DAILY PO
     Route: 048
     Dates: start: 20080301, end: 20100205

REACTIONS (4)
  - AURA [None]
  - BLOOD PRESSURE INCREASED [None]
  - GRAND MAL CONVULSION [None]
  - PRODUCT SHAPE ISSUE [None]
